FAERS Safety Report 5852745-4 (Version None)
Quarter: 2008Q3

REPORT INFORMATION
  Report Type: 
  Country: None (occurrence: None)
  Receive Date: 20080821
  Receipt Date: 20080815
  Transmission Date: 20090109
  Serious: Yes (Other)
  Sender: FDA-Public Use
  Company Number: US-AVENTIS-200815310US

PATIENT

DRUGS (2)
  1. TAXOTERE [Suspect]
     Dosage: DOSE: CYCLE 1: 75/MG/M2
  2. CYCLOPHOSPHAMIDE [Suspect]
     Dosage: DOSE: UNK

REACTIONS (1)
  - OPTIC NEURITIS [None]
